FAERS Safety Report 7051212-2 (Version None)
Quarter: 2010Q4

REPORT INFORMATION
  Report Type: 
  Country: None (occurrence: None)
  Receive Date: 20101019
  Receipt Date: 20101008
  Transmission Date: 20110411
  Serious: Yes (Other)
  Sender: FDA-Public Use
  Company Number: US-US-EMD SERONO, INC.-7021521

PATIENT
  Sex: Female
  Weight: 91 kg

DRUGS (8)
  1. REBIF [Suspect]
     Indication: MULTIPLE SCLEROSIS
     Route: 058
     Dates: start: 20051025
  2. ALEVE (CAPLET) [Concomitant]
     Indication: PREMEDICATION
  3. PRILOSEC [Concomitant]
  4. BLOOD PRESSURE MEDICATION [Concomitant]
     Indication: HYPERTENSION
  5. VITAMINS [Concomitant]
  6. GABAPENTIN [Concomitant]
     Indication: PAIN IN EXTREMITY
  7. HORMONE REPLACEMENT THERAPY [Concomitant]
     Indication: MENOPAUSE
     Dates: start: 20080101, end: 20100101
  8. BIRTH CONTROL PILL [Concomitant]
     Dates: start: 19960101

REACTIONS (2)
  - BREAST CANCER STAGE II [None]
  - DEPRESSED MOOD [None]
